FAERS Safety Report 17770480 (Version 1)
Quarter: 2020Q2

REPORT INFORMATION
  Report Type: Spontaneous
  Country: FR (occurrence: FR)
  Receive Date: 20200512
  Receipt Date: 20200512
  Transmission Date: 20200714
  Serious: Yes (Hospitalization, Other)
  Sender: FDA-Public Use
  Company Number: NVSC2020FR127573

PATIENT
  Age: 80 Year
  Sex: Female
  Weight: 69 kg

DRUGS (9)
  1. LEPTICUR [Concomitant]
     Active Substance: TROPATEPINE HYDROCHLORIDE
     Indication: PRODUCT USED FOR UNKNOWN INDICATION
     Dosage: UNK
     Route: 065
  2. MICARDIS [Concomitant]
     Active Substance: TELMISARTAN
     Indication: HYPERTENSION
     Dosage: UNK
     Route: 065
  3. REPAGLINIDE. [Suspect]
     Active Substance: REPAGLINIDE
     Indication: TYPE 2 DIABETES MELLITUS
     Dosage: UNK, BID  1-1-0
     Route: 065
  4. DEPAMIDE [Suspect]
     Active Substance: VALPROMIDE
     Indication: BIPOLAR DISORDER
     Dosage: 900 MG
     Route: 065
  5. DEPAMIDE [Suspect]
     Active Substance: VALPROMIDE
     Dosage: 4 DF, QD (2 TABLETS IN THE MORNING, 2 IN THE EVENING)
     Route: 065
  6. PANTOPRAZOLE [Suspect]
     Active Substance: PANTOPRAZOLE
     Indication: PRODUCT USED FOR UNKNOWN INDICATION
     Dosage: UNK UNK, QD      0-0-1
     Route: 065
  7. HYDROCHLOROTHIAZIDE,TELMISARTAN [Suspect]
     Active Substance: HYDROCHLOROTHIAZIDE\TELMISARTAN
     Indication: HYPERTENSION
     Dosage: UNK UNK, QD (1-0-0  )
     Route: 065
  8. ESIDREX [Suspect]
     Active Substance: HYDROCHLOROTHIAZIDE
     Indication: HYPERTENSION
     Dosage: UNK UNK, BID
     Route: 065
  9. DEPAMIDE [Suspect]
     Active Substance: VALPROMIDE
     Dosage: 2 DF, QD (2 TABLET PER DAY)
     Route: 065
     Dates: start: 2005

REACTIONS (10)
  - Anticonvulsant drug level decreased [Unknown]
  - Product solubility abnormal [Unknown]
  - Dysphagia [Unknown]
  - Fall [Unknown]
  - Balance disorder [Unknown]
  - Mania [Unknown]
  - Nocturia [Unknown]
  - Diabetes mellitus [Unknown]
  - Product availability issue [Unknown]
  - Underdose [Unknown]

NARRATIVE: CASE EVENT DATE: 201908
